FAERS Safety Report 19922599 (Version 1)
Quarter: 2021Q4

REPORT INFORMATION
  Report Type: Spontaneous
  Country: US (occurrence: US)
  Receive Date: 20211005
  Receipt Date: 20211005
  Transmission Date: 20220303
  Serious: Yes (Other)
  Sender: FDA-Public Use
  Company Number: None

PATIENT
  Age: 67 Year
  Sex: Female
  Weight: 60.75 kg

DRUGS (13)
  1. LASTACAFT [Suspect]
     Active Substance: ALCAFTADINE
     Indication: Conjunctivitis allergic
     Dosage: QUANTITY:1 DROP(S);
     Route: 047
     Dates: start: 20210615, end: 20210730
  2. ALBUTEROL [Concomitant]
     Active Substance: ALBUTEROL
  3. AZELASTINE [Concomitant]
     Active Substance: AZELASTINE
  4. FAMOTIDINE [Concomitant]
     Active Substance: FAMOTIDINE
  5. WELLBUTRIN [Concomitant]
     Active Substance: BUPROPION HYDROCHLORIDE
  6. LEXAPRO [Concomitant]
     Active Substance: ESCITALOPRAM OXALATE
  7. OTC PRESERVATIVE [Concomitant]
  8. VITAMIN B [Concomitant]
     Active Substance: VITAMIN B
  9. SELENIUM [Concomitant]
     Active Substance: SELENIUM
  10. VITAMIN B COMPLEX [Concomitant]
     Active Substance: CYANOCOBALAMIN\DEXPANTHENOL\NIACINAMIDE\PYRIDOXINE HYDROCHLORIDE\RIBOFLAVIN 5^-PHOSPHATE SODIUM\THIA
  11. VITAMIN  D + K [Concomitant]
  12. CALCIUM [Concomitant]
     Active Substance: CALCIUM
  13. OMEGA [Concomitant]

REACTIONS (9)
  - Product prescribing error [None]
  - Eye pruritus [None]
  - Visual impairment [None]
  - Eye pain [None]
  - Dry eye [None]
  - Condition aggravated [None]
  - Treatment failure [None]
  - Eye irritation [None]
  - Eye inflammation [None]

NARRATIVE: CASE EVENT DATE: 20210730
